FAERS Safety Report 15574834 (Version 1)
Quarter: 2018Q4

REPORT INFORMATION
  Report Type: Spontaneous
  Country: US (occurrence: US)
  Receive Date: 20181101
  Receipt Date: 20181101
  Transmission Date: 20190205
  Serious: Yes (Other)
  Sender: FDA-Public Use
  Company Number: None

PATIENT
  Age: 32 Year
  Sex: Female
  Weight: 55.6 kg

DRUGS (2)
  1. BENADRYL IVP [Concomitant]
     Dates: start: 20181031, end: 20181031
  2. FERRIC CARBOXYMALTOSE [Suspect]
     Active Substance: FERRIC CARBOXYMALTOSE
     Indication: ANAEMIA
     Dosage: ?          OTHER FREQUENCY:ONE TIME INFUSION;?
     Route: 041
     Dates: start: 20181031, end: 20181031

REACTIONS (4)
  - Nausea [None]
  - Pruritus [None]
  - Back pain [None]
  - Urticaria [None]

NARRATIVE: CASE EVENT DATE: 20181031
